FAERS Safety Report 15345232 (Version 1)
Quarter: 2018Q3

REPORT INFORMATION
  Report Type: Spontaneous
  Country: AU (occurrence: AU)
  Receive Date: 20180903
  Receipt Date: 20180903
  Transmission Date: 20181010
  Serious: Yes (Hospitalization)
  Sender: FDA-Public Use
  Company Number: AU-009507513-1808AUS013050

PATIENT
  Sex: Male
  Weight: 68 kg

DRUGS (2)
  1. ADVANTAN [Suspect]
     Active Substance: METHYLPREDNISOLONE ACEPONATE
     Dosage: WEEKLY
     Route: 061
     Dates: start: 20000101, end: 20040801
  2. NOVASONE [Suspect]
     Active Substance: MOMETASONE FUROATE
     Dosage: 0.1, WEEKLY
     Route: 061
     Dates: start: 20040801, end: 20140801

REACTIONS (1)
  - Steroid withdrawal syndrome [Recovered/Resolved]
